FAERS Safety Report 6993387-7 (Version None)
Quarter: 2010Q3

REPORT INFORMATION
  Report Type: 
  Country: None (occurrence: None)
  Receive Date: 20100917
  Receipt Date: 20100210
  Transmission Date: 20110219
  Serious: No
  Sender: FDA-Public Use
  Company Number: US-ASTRAZENECA-2010SE06138

PATIENT
  Age: 54 Year
  Sex: Female
  Weight: 74.8 kg

DRUGS (3)
  1. SEROQUEL [Suspect]
     Indication: BIPOLAR I DISORDER
     Dosage: 900 MG
     Route: 048
  2. SEROQUEL [Suspect]
     Route: 048
     Dates: start: 20090101
  3. ALPRAZOLAM [Concomitant]
     Indication: ANXIETY
     Route: 048

REACTIONS (4)
  - BLINDNESS UNILATERAL [None]
  - CATARACT [None]
  - RESTLESS LEGS SYNDROME [None]
  - WEIGHT INCREASED [None]
